FAERS Safety Report 16678925 (Version 1)
Quarter: 2019Q3

REPORT INFORMATION
  Report Type: Report from Study
  Country: None (occurrence: US)
  Receive Date: 20190807
  Receipt Date: 20190807
  Transmission Date: 20191004
  Serious: Yes (Other)
  Sender: FDA-Public Use
  Company Number: US-ABBVIE-19K-163-2876437-00

PATIENT
  Age: 55 Year
  Sex: Male

DRUGS (1)
  1. CREON [Suspect]
     Active Substance: PANCRELIPASE AMYLASE\PANCRELIPASE LIPASE\PANCRELIPASE PROTEASE
     Indication: PRODUCT USED FOR UNKNOWN INDICATION
     Route: 048

REACTIONS (16)
  - Anorectal manometry [Unknown]
  - Gastric bypass [Unknown]
  - Cholecystectomy [Unknown]
  - Colonoscopy [Unknown]
  - Endoscopic ultrasound [Unknown]
  - Colonoscopy [Unknown]
  - Joint arthroplasty [Unknown]
  - Cyst [Unknown]
  - Abdominal panniculectomy [Unknown]
  - Anorectal operation [Unknown]
  - Colectomy [Unknown]
  - Endoscopy upper gastrointestinal tract [Unknown]
  - Knee arthroplasty [Unknown]
  - Spinal laminectomy [Unknown]
  - Cholecystectomy [Unknown]
  - Intervertebral disc operation [Unknown]

NARRATIVE: CASE EVENT DATE: 20120815
